FAERS Safety Report 15586048 (Version 1)
Quarter: 2018Q4

REPORT INFORMATION
  Report Type: Spontaneous
  Country: US (occurrence: US)
  Receive Date: 20181105
  Receipt Date: 20181105
  Transmission Date: 20190205
  Serious: No
  Sender: FDA-Public Use
  Company Number: US-ALLERGAN-1764180US

PATIENT
  Age: 30 Year
  Sex: Female
  Weight: 88.44 kg

DRUGS (1)
  1. LO LOESTRIN FE [Suspect]
     Active Substance: ETHINYL ESTRADIOL\NORETHINDRONE ACETATE
     Indication: CONTRACEPTION
     Dosage: 1 PILL, QD
     Route: 048
     Dates: end: 201601

REACTIONS (3)
  - Metabolic disorder [Not Recovered/Not Resolved]
  - Allergic reaction to excipient [Unknown]
  - Urticaria [Recovered/Resolved]

NARRATIVE: CASE EVENT DATE: 201509
